FAERS Safety Report 25237837 (Version 1)
Quarter: 2025Q2

REPORT INFORMATION
  Report Type: Report from Study
  Country: JP (occurrence: JP)
  Receive Date: 20250425
  Receipt Date: 20250425
  Transmission Date: 20250717
  Serious: Yes (Other)
  Sender: ROCHE
  Company Number: JP-ROCHE-10000260167

PATIENT

DRUGS (2)
  1. ATEZOLIZUMAB [Suspect]
     Active Substance: ATEZOLIZUMAB
     Indication: Non-small cell lung cancer
     Route: 065
  2. PEMBROLIZUMAB [Suspect]
     Active Substance: PEMBROLIZUMAB
     Indication: Non-small cell lung cancer
     Route: 065

REACTIONS (8)
  - Hypothyroidism [Unknown]
  - Pneumonitis [Unknown]
  - Infusion related reaction [Unknown]
  - Colitis [Unknown]
  - Hepatitis [Unknown]
  - Skin reaction [Unknown]
  - Hypophysitis [Unknown]
  - Weight decreased [Unknown]
